FAERS Safety Report 8154954-0 (Version None)
Quarter: 2012Q1

REPORT INFORMATION
  Report Type: 
  Country: None (occurrence: None)
  Receive Date: 20120221
  Receipt Date: 20120216
  Transmission Date: 20120608
  Serious: Yes (Death)
  Sender: FDA-Public Use
  Company Number: PHHY2012DE012638

PATIENT
  Sex: Male

DRUGS (15)
  1. GABAPENTIN [Concomitant]
     Route: 048
  2. CARVEDILOL [Concomitant]
     Indication: HYPERTENSION
     Route: 048
  3. LEVODOPA [Concomitant]
     Route: 048
  4. THIOTROPIUMBROMID [Concomitant]
     Indication: CHRONIC OBSTRUCTIVE PULMONARY DISEASE
     Route: 048
  5. CHLORHEXIDINE GLUCONATE [Concomitant]
     Route: 048
  6. RAMIPRIL [Concomitant]
     Indication: HYPERTENSION
     Route: 048
  7. LEVOCOMP [Concomitant]
     Route: 048
  8. TORSEMIDE [Concomitant]
     Indication: HYPERTENSION
     Route: 048
  9. SIMVASTATIN [Concomitant]
     Indication: HYPERLIPIDAEMIA
     Route: 048
  10. CLONIDINE [Concomitant]
     Route: 048
  11. COLECALCIFEROL [Concomitant]
     Route: 048
  12. AFINITOR [Suspect]
     Indication: RENAL CELL CARCINOMA
     Dosage: 5 MG, PER DAY
     Route: 048
     Dates: start: 20120105
  13. LERCANIDIPINE [Concomitant]
     Indication: HYPERTENSION
  14. FORMOTEROL FUMARATE [Concomitant]
     Indication: CHRONIC OBSTRUCTIVE PULMONARY DISEASE
     Route: 048
  15. ACTRAPHANE HM [Concomitant]
     Indication: DIABETES MELLITUS
     Route: 058

REACTIONS (1)
  - ACUTE MYOCARDIAL INFARCTION [None]
